FAERS Safety Report 5784762-7 (Version None)
Quarter: 2008Q2

REPORT INFORMATION
  Report Type: 
  Country: None (occurrence: None)
  Receive Date: 20080605
  Receipt Date: 20080508
  Transmission Date: 20081010
  Serious: No
  Sender: FDA-Public Use
  Company Number: A0722548A

PATIENT
  Sex: Female
  Weight: 102 kg

DRUGS (1)
  1. ALLI [Suspect]
     Dates: start: 20080109

REACTIONS (5)
  - DIZZINESS [None]
  - DRUG INEFFECTIVE [None]
  - FATIGUE [None]
  - PAIN [None]
  - THERAPEUTIC RESPONSE UNEXPECTED [None]
